FAERS Safety Report 7533732-7 (Version None)
Quarter: 2011Q2

REPORT INFORMATION
  Report Type: 
  Country: None (occurrence: None)
  Receive Date: 20110608
  Receipt Date: 20060410
  Transmission Date: 20111010
  Serious: Yes (Death)
  Sender: FDA-Public Use
  Company Number: PHNR2006AU00627

PATIENT

DRUGS (3)
  1. HALOPERIDOL [Concomitant]
  2. CLOZAPINE [Suspect]
  3. BENZODIAZEPINE DERIVATIVES [Concomitant]

REACTIONS (3)
  - DEATH [None]
  - AGITATION [None]
  - MALAISE [None]
